FAERS Safety Report 9383111 (Version 1)
Quarter: 2013Q3

REPORT INFORMATION
  Report Type: Spontaneous
  Country: US (occurrence: US)
  Receive Date: 20130704
  Receipt Date: 20130704
  Transmission Date: 20140515
  Serious: Yes (Other)
  Sender: FDA-Public Use
  Company Number: CHPA2013US010639

PATIENT
  Sex: Male

DRUGS (1)
  1. PREVACID 24HR 15MG [Suspect]
     Dosage: UNK, UNK
     Route: 048

REACTIONS (1)
  - Hepatomegaly [Unknown]
